FAERS Safety Report 11673755 (Version 1)
Quarter: 2015Q4

REPORT INFORMATION
  Report Type: Spontaneous
  Country: TW (occurrence: TW)
  Receive Date: 20151028
  Receipt Date: 20151028
  Transmission Date: 20160304
  Serious: Yes (Other)
  Sender: FDA-Public Use
  Company Number: TW-MYLANLABS-2015M1036658

PATIENT

DRUGS (1)
  1. WARFARIN [Suspect]
     Active Substance: WARFARIN
     Indication: TRICUSPID VALVE REPLACEMENT
     Dosage: FOR 10 YEARS
     Route: 065

REACTIONS (2)
  - Intestinal haematoma [Recovered/Resolved]
  - Pneumatosis intestinalis [Unknown]
